FAERS Safety Report 10500797 (Version 1)
Quarter: 2014Q4

REPORT INFORMATION
  Report Type: Spontaneous
  Country: US (occurrence: US)
  Receive Date: 20141007
  Receipt Date: 20141007
  Transmission Date: 20150528
  Serious: No
  Sender: FDA-Public Use
  Company Number: US-009507513-1409USA013934

PATIENT
  Age: 48 Year
  Sex: Female

DRUGS (1)
  1. NEXPLANON [Suspect]
     Active Substance: ETONOGESTREL
     Indication: CONTRACEPTION
     Dosage: 68 MG/ONE ROD, INSERTED EVERY THREE YEARS
     Route: 059
     Dates: start: 20140815, end: 20140903

REACTIONS (2)
  - Hypersensitivity [Unknown]
  - Rash generalised [Unknown]

NARRATIVE: CASE EVENT DATE: 20140826
